FAERS Safety Report 15509978 (Version 1)
Quarter: 2018Q4

REPORT INFORMATION
  Report Type: Spontaneous
  Country: US (occurrence: US)
  Receive Date: 20181016
  Receipt Date: 20181016
  Transmission Date: 20190205
  Serious: No
  Sender: FDA-Public Use
  Company Number: US-AMGEN-USASP2018046890

PATIENT
  Sex: Male

DRUGS (1)
  1. NEULASTA [Suspect]
     Active Substance: PEGFILGRASTIM
     Indication: PRODUCT USED FOR UNKNOWN INDICATION
     Dosage: UNK UNK, ONE TIME DOSE
     Route: 065
     Dates: start: 2016, end: 2016

REACTIONS (2)
  - Seborrhoea [Not Recovered/Not Resolved]
  - White blood cell count increased [Not Recovered/Not Resolved]

NARRATIVE: CASE EVENT DATE: 2018
